FAERS Safety Report 5566726-1 (Version None)
Quarter: 2007Q4

REPORT INFORMATION
  Report Type: 
  Country: None (occurrence: None)
  Receive Date: 20071219
  Receipt Date: 20071024
  Transmission Date: 20080405
  Serious: Yes (Hospitalization, Other)
  Sender: FDA-Public Use
  Company Number: US-PURDUE-USA_2007_0030213

PATIENT
  Sex: Female
  Weight: 42 kg

DRUGS (7)
  1. OXYIR CAPSULES 5 MG [Concomitant]
     Indication: PAIN
     Dosage: 5 MG, UNK
  2. SOMA [Concomitant]
  3. XANAX [Concomitant]
  4. PROPYLTHIOURACIL [Concomitant]
     Indication: HYPERTHYROIDISM
  5. ANTIHYPERTENSIVES [Concomitant]
  6. CARDIAC THERAPY [Concomitant]
  7. OXYCONTIN [Suspect]
     Indication: BACK PAIN
     Dosage: 20 MG, SEE TEXT
     Dates: start: 19980101, end: 20001023

REACTIONS (18)
  - ALOPECIA [None]
  - ANOREXIA [None]
  - ASTHENIA [None]
  - DIZZINESS [None]
  - DRUG DEPENDENCE [None]
  - ENERGY INCREASED [None]
  - GENERAL PHYSICAL HEALTH DETERIORATION [None]
  - HALLUCINATION [None]
  - HEART RATE INCREASED [None]
  - HOSPITALISATION [None]
  - HOT FLUSH [None]
  - LIFE SUPPORT [None]
  - MALAISE [None]
  - MEMORY IMPAIRMENT [None]
  - NERVOUS SYSTEM DISORDER [None]
  - STOMACH DISCOMFORT [None]
  - TOOTH LOSS [None]
  - WEIGHT DECREASED [None]
